FAERS Safety Report 5878045-4 (Version None)
Quarter: 2008Q3

REPORT INFORMATION
  Report Type: 
  Country: None (occurrence: None)
  Receive Date: 20080911
  Receipt Date: 20080909
  Transmission Date: 20090109
  Serious: Yes (Other)
  Sender: FDA-Public Use
  Company Number: DE-JNJFOC-20080702157

PATIENT
  Sex: Male
  Weight: 95 kg

DRUGS (9)
  1. INVEGA [Suspect]
     Route: 048
  2. INVEGA [Suspect]
     Indication: SCHIZOAFFECTIVE DISORDER
     Route: 048
  3. LEPONEX [Suspect]
     Indication: DRUG USE FOR UNKNOWN INDICATION
     Route: 048
  4. TREVILOR [Concomitant]
     Route: 048
  5. VALPROATE SODIUM [Concomitant]
     Route: 048
  6. LITHIUM CARBONATE [Concomitant]
     Route: 065
  7. LEVOTHYROXINE SODIUM [Concomitant]
     Route: 065
  8. NITRENDIPINE [Concomitant]
     Indication: HYPERTONIA
     Route: 065
  9. ENALAPRIL MALEATE [Concomitant]

REACTIONS (4)
  - DEPRESSION [None]
  - MYOCLONUS [None]
  - PSYCHOMOTOR SKILLS IMPAIRED [None]
  - STARING [None]
